FAERS Safety Report 9498327 (Version 1)
Quarter: 2013Q3

REPORT INFORMATION
  Report Type: Report from Study
  Country: DE (occurrence: DE)
  Receive Date: 20130904
  Receipt Date: 20130904
  Transmission Date: 20140515
  Serious: Yes (Other)
  Sender: FDA-Public Use
  Company Number: DE-SANOFI-AVENTIS-2013SA086010

PATIENT
  Age: 62 Year
  Sex: Female
  Weight: 80 kg

DRUGS (8)
  1. MULTAQ [Suspect]
     Indication: ATRIAL FIBRILLATION
     Dates: start: 20120618, end: 20130124
  2. BETA BLOCKING AGENTS [Concomitant]
     Dates: start: 200806
  3. BETA BLOCKING AGENTS [Concomitant]
     Dates: start: 20130410
  4. PROTEIN C (COAGULATION INHIBITOR)/FACTOR X (STUART PROWER FACTOR)/FACTOR VII (PROCONVERTIN)/FACTOR I [Concomitant]
     Indication: THROMBOSIS PROPHYLAXIS
     Route: 048
     Dates: start: 20120618
  5. METOPROLOL [Concomitant]
     Dosage: UNIT CONT:180 MG
  6. CAPTOPRIL [Concomitant]
  7. MOXONIDINE [Concomitant]
  8. SIMVASTATIN [Concomitant]

REACTIONS (1)
  - Atrial fibrillation [Unknown]
